FAERS Safety Report 6291627-3 (Version None)
Quarter: 2009Q3

REPORT INFORMATION
  Report Type: 
  Country: None (occurrence: None)
  Receive Date: 20090730
  Receipt Date: 20090716
  Transmission Date: 20100115
  Serious: Yes (Death)
  Sender: FDA-Public Use
  Company Number: US-MYLANLABS-2007S1007290

PATIENT
  Age: 54 Year
  Sex: Male
  Weight: 67 kg

DRUGS (1)
  1. FENTANYL TRANSDERMAL SYSTEM [Suspect]
     Indication: PAIN
     Route: 062
     Dates: end: 20050803

REACTIONS (3)
  - ACCIDENTAL OVERDOSE [None]
  - DEATH [None]
  - DRUG TOXICITY [None]
